FAERS Safety Report 12227132 (Version 2)
Quarter: 2016Q2

REPORT INFORMATION
  Report Type: Spontaneous
  Country: US (occurrence: US)
  Receive Date: 20160331
  Receipt Date: 20160407
  Transmission Date: 20160815
  Serious: Yes (Hospitalization)
  Sender: FDA-Public Use
  Company Number: US-ACTELION-A-NJ2016-133529

PATIENT
  Age: 54 Year
  Sex: Female

DRUGS (2)
  1. ADCIRCA [Concomitant]
     Active Substance: TADALAFIL
  2. VELETRI [Suspect]
     Active Substance: EPOPROSTENOL
     Indication: PULMONARY HYPERTENSION
     Dosage: 20.5 NG/KG, PER MIN
     Route: 042
     Dates: start: 20140328

REACTIONS (6)
  - Device leakage [Unknown]
  - Drug dose omission [Recovered/Resolved]
  - Infusion site extravasation [Unknown]
  - Catheter placement [Unknown]
  - Hypotension [Unknown]
  - Oxygen saturation decreased [Recovering/Resolving]
